FAERS Safety Report 7491935-4 (Version None)
Quarter: 2011Q2

REPORT INFORMATION
  Report Type: 
  Country: None (occurrence: None)
  Receive Date: 20110519
  Receipt Date: 20110512
  Transmission Date: 20111010
  Serious: Yes (Death, Hospitalization, Other)
  Sender: FDA-Public Use
  Company Number: JP-BAYER-201014736BYL

PATIENT
  Age: 77 Year
  Sex: Male
  Weight: 59 kg

DRUGS (12)
  1. AMINOLEBAN EN [Concomitant]
     Indication: HEPATIC CIRRHOSIS
     Dosage: 50 G (DAILY DOSE), , ORAL
     Route: 048
     Dates: start: 20081216, end: 20100912
  2. FAMOTIDINE [Concomitant]
     Indication: VARICES OESOPHAGEAL
     Dosage: 40 MG (DAILY DOSE), , ORAL
     Route: 048
     Dates: end: 20100912
  3. FAMOTIDINE [Concomitant]
  4. NEXAVAR [Suspect]
     Indication: HEPATIC NEOPLASM MALIGNANT
     Route: 048
     Dates: start: 20100810, end: 20100906
  5. URSO 250 [Concomitant]
     Indication: HEPATITIS C
     Dosage: 600 MG (DAILY DOSE), , ORAL
     Route: 048
     Dates: end: 20100912
  6. UFT [Concomitant]
     Indication: HEPATIC NEOPLASM MALIGNANT
     Dosage: 300 MG (DAILY DOSE), , ORAL
     Route: 048
     Dates: start: 20100707, end: 20100809
  7. UFTORAL [Concomitant]
     Indication: HEPATIC NEOPLASM MALIGNANT
     Dosage: UNK
     Dates: start: 20100707, end: 20100809
  8. NEXAVAR [Suspect]
     Route: 048
     Dates: start: 20100907, end: 20100912
  9. WARFARIN SODIUM [Concomitant]
     Indication: PORTAL VEIN THROMBOSIS
     Dosage: 0.5 MG (DAILY DOSE), , ORAL
     Route: 048
     Dates: start: 20100831, end: 20100912
  10. NORVASC [Concomitant]
     Indication: HYPERTENSION
     Dosage: 5 MG (DAILY DOSE), , ORAL
     Route: 048
     Dates: end: 20100912
  11. LIVACT [Concomitant]
     Indication: HEPATIC CIRRHOSIS
     Dosage: 12.45 G (DAILY DOSE), , ORAL
     Route: 048
     Dates: end: 20100912
  12. FALKAMIN [Concomitant]
     Indication: HEPATIC CIRRHOSIS
     Dosage: UNK
     Dates: end: 20100912

REACTIONS (7)
  - METABOLIC ACIDOSIS [None]
  - GASTROINTESTINAL HAEMORRHAGE [None]
  - HEPATIC ENCEPHALOPATHY [None]
  - HYPERAMMONAEMIA [None]
  - GASTROINTESTINAL NECROSIS [None]
  - SOMNOLENCE [None]
  - HYPOGLYCAEMIA [None]
